FAERS Safety Report 5452833-0 (Version None)
Quarter: 2007Q3

REPORT INFORMATION
  Report Type: 
  Country: None (occurrence: None)
  Receive Date: 20070914
  Receipt Date: 20070906
  Transmission Date: 20080115
  Serious: Yes (Other)
  Sender: FDA-Public Use
  Company Number: US-ROCHE-515878

PATIENT
  Age: 56 Year
  Sex: Male

DRUGS (2)
  1. PEG-INTERFERON A-2A (RO 25-8310) [Suspect]
     Dosage: PATIENT WAS INITIATED ON MONOTHERAPY WITH PEGASYS.
     Route: 065
     Dates: start: 20070814
  2. ANTIHYPERTENSIVE AGENTS [Concomitant]
     Indication: HYPERTENSION
     Dosage: THE PATIENT WAS TAKING ANTIHYPERTENSION MEDICATIONS.

REACTIONS (2)
  - BLOOD PRESSURE INCREASED [None]
  - RENAL FAILURE [None]
